FAERS Safety Report 9748710 (Version 1)
Quarter: 2013Q4

REPORT INFORMATION
  Report Type: Spontaneous
  Country: RO (occurrence: None)
  Receive Date: 20131209
  Receipt Date: 20131209
  Transmission Date: 20140711
  Serious: Yes (Hospitalization)
  Sender: FDA-Public Use
  Company Number: MAC2013000746

PATIENT
  Age: 71 Year
  Sex: Female

DRUGS (3)
  1. PANTOPRAZOLE (PANTOPRAZOLE) UNKNOWN [Suspect]
     Indication: HELICOBACTER INFECTION
  2. CLARITHROMYCIN (CLARITHROMYCIN) [Suspect]
     Indication: HELICOBACTER INFECTION
  3. AMOXICILLIN (AMOXICILLIN) [Suspect]
     Indication: HELICOBACTER INFECTION

REACTIONS (3)
  - Pseudomembranous colitis [None]
  - Diarrhoea [None]
  - Abdominal pain [None]
